FAERS Safety Report 10226895 (Version 2)
Quarter: 2014Q3

REPORT INFORMATION
  Report Type: Report from Study
  Country: DE (occurrence: DE)
  Receive Date: 20140610
  Receipt Date: 20140703
  Transmission Date: 20150326
  Serious: Yes (Death, Life-Threatening)
  Sender: FDA-Public Use
  Company Number: DE-009507513-1406DEU004633

PATIENT

DRUGS (1)
  1. TEMOZOLOMIDE [Suspect]
     Active Substance: TEMOZOLOMIDE
     Indication: GLIOBLASTOMA MULTIFORME
     Dosage: 150 MG/M2, (1 WEEK ON/1 WEEK OFF TEMOZOLOMIDE)
     Route: 048

REACTIONS (5)
  - Transaminases increased [Unknown]
  - Pneumocystis jirovecii pneumonia [Fatal]
  - Infection [Unknown]
  - Thrombocytopenia [Unknown]
  - Leukopenia [Unknown]
